FAERS Safety Report 8097492-6 (Version None)
Quarter: 2012Q1

REPORT INFORMATION
  Report Type: 
  Country: None (occurrence: None)
  Receive Date: 20120129
  Receipt Date: 20111121
  Transmission Date: 20120608
  Serious: No
  Sender: FDA-Public Use
  Company Number: US-ABBOTT-11P-163-0876621-00

PATIENT
  Age: 64 Year
  Sex: Female

DRUGS (22)
  1. CINNAMON [Concomitant]
     Indication: PRODUCT USED FOR UNKNOWN INDICATION
  2. GREEN TEA EXTRACT [Concomitant]
     Indication: PRODUCT USED FOR UNKNOWN INDICATION
  3. CALCIUM ASPARTATE [Concomitant]
     Indication: PRODUCT USED FOR UNKNOWN INDICATION
     Dosage: 2 IN THE MORNING, 2 AT NIGHT
  4. GRAPE SEED OIL [Concomitant]
     Indication: PRODUCT USED FOR UNKNOWN INDICATION
  5. NIACIN [Concomitant]
     Indication: BLOOD CHOLESTEROL
  6. EVOXAC [Concomitant]
     Indication: DRY MOUTH
  7. ORACEA [Concomitant]
     Indication: ACNE
  8. COQ10 [Concomitant]
     Indication: PRODUCT USED FOR UNKNOWN INDICATION
  9. TRIPLE MAGNESIUM COMPLEX [Concomitant]
     Indication: PRODUCT USED FOR UNKNOWN INDICATION
  10. EVENING PRIMROSE OIL [Concomitant]
     Indication: PRODUCT USED FOR UNKNOWN INDICATION
  11. ESTRA C [Concomitant]
     Indication: PRODUCT USED FOR UNKNOWN INDICATION
  12. LUTEIN [Concomitant]
     Indication: MACULAR DEGENERATION
  13. BIOTIN [Concomitant]
     Indication: PRODUCT USED FOR UNKNOWN INDICATION
  14. CHLOROPHYLL [Concomitant]
     Indication: PRODUCT USED FOR UNKNOWN INDICATION
  15. HUMIRA [Suspect]
     Indication: RHEUMATOID ARTHRITIS
     Dates: start: 20111001
  16. VITAMIN D [Concomitant]
     Indication: VITAMIN D DEFICIENCY
  17. EVOXAC [Concomitant]
     Indication: DRY EYE
  18. ZINC SULFATE [Concomitant]
     Indication: PRODUCT USED FOR UNKNOWN INDICATION
  19. KRILL OIL [Concomitant]
     Indication: PRODUCT USED FOR UNKNOWN INDICATION
  20. FAMCICLOVIR [Concomitant]
     Indication: HERPES ZOSTER
  21. SELENIUM [Concomitant]
     Indication: PRODUCT USED FOR UNKNOWN INDICATION
  22. MULTIPLE B HOMOCYSTEINE FORMULA [Concomitant]
     Indication: PRODUCT USED FOR UNKNOWN INDICATION
     Dosage: 1 DAILY

REACTIONS (5)
  - DRUG INEFFECTIVE [None]
  - CONTUSION [None]
  - UNEVALUABLE EVENT [None]
  - OEDEMA PERIPHERAL [None]
  - ERYTHEMA [None]
